FAERS Safety Report 22767261 (Version 2)
Quarter: 2024Q1

REPORT INFORMATION
  Report Type: Report from Study
  Country: US (occurrence: US)
  Receive Date: 20230731
  Receipt Date: 20240308
  Transmission Date: 20240410
  Serious: Yes (Other)
  Sender: FDA-Public Use
  Company Number: US-JAZZ PHARMACEUTICALS-2023-US-007556

PATIENT
  Sex: Female

DRUGS (10)
  1. XYREM [Suspect]
     Active Substance: SODIUM OXYBATE
     Indication: Essential tremor
     Dosage: 1 GRAM, QD
     Route: 048
  2. XYREM [Suspect]
     Active Substance: SODIUM OXYBATE
     Dosage: 1.5 GRAM, QD
     Route: 048
  3. BACLOFEN [Concomitant]
     Active Substance: BACLOFEN
     Indication: Product used for unknown indication
     Dosage: 0000
     Dates: start: 20210721
  4. BOTOX [Concomitant]
     Active Substance: ONABOTULINUMTOXINA
     Indication: Product used for unknown indication
     Dosage: 0000
     Dates: start: 20221213
  5. CLONAZEPAM [Concomitant]
     Active Substance: CLONAZEPAM
     Indication: Product used for unknown indication
     Dosage: 0000
     Dates: start: 20220111
  6. VITAMINS [Concomitant]
     Active Substance: VITAMINS
     Indication: Product used for unknown indication
     Dosage: UNK
     Dates: start: 20210101
  7. CALCIUM + MAGNESIUM + ZINK [Concomitant]
     Indication: Product used for unknown indication
     Dosage: UNK
     Dates: start: 20220101
  8. TRAZODONE [Concomitant]
     Active Substance: TRAZODONE HYDROCHLORIDE
     Indication: Product used for unknown indication
  9. ATORVASTATIN [Concomitant]
     Active Substance: ATORVASTATIN
     Indication: Product used for unknown indication
  10. PROPRANOLOL HYDROCHLORIDE [Concomitant]
     Active Substance: PROPRANOLOL HYDROCHLORIDE
     Indication: Product used for unknown indication
     Route: 048

REACTIONS (12)
  - Hip fracture [Unknown]
  - Fall [Unknown]
  - Blood cholesterol increased [Unknown]
  - Migraine [Unknown]
  - Aphonia [Recovering/Resolving]
  - Hyperlipidaemia [Unknown]
  - Thyroid mass [Unknown]
  - Neck pain [Unknown]
  - Vocal cord dysfunction [Recovering/Resolving]
  - Tremor [Recovering/Resolving]
  - Anxiety [Unknown]
  - Off label use [Unknown]
